FAERS Safety Report 15489384 (Version 1)
Quarter: 2018Q4

REPORT INFORMATION
  Report Type: Spontaneous
  Country: US (occurrence: US)
  Receive Date: 20181011
  Receipt Date: 20181011
  Transmission Date: 20190205
  Serious: Yes (Other)
  Sender: FDA-Public Use
  Company Number: US-PFIZER INC-2018408942

PATIENT
  Sex: Male

DRUGS (1)
  1. RAPAMUNE [Suspect]
     Active Substance: SIROLIMUS
     Indication: GRAFT VERSUS HOST DISEASE
     Dosage: FROM 0.5 MG TO 1 MG

REACTIONS (6)
  - Drug ineffective for unapproved indication [Unknown]
  - Blindness [Unknown]
  - Condition aggravated [Unknown]
  - Rash [Unknown]
  - Vertigo [Unknown]
  - Gastric disorder [Unknown]
